FAERS Safety Report 8782496 (Version 1)
Quarter: 2012Q4

REPORT INFORMATION
  Report Type: 
  Country: US (occurrence: US)
  Receive Date: 20120913
  Receipt Date: 20120913
  Transmission Date: 20130627
  Serious: No
  Sender: FDA-Public Use
  Company Number: US-VERTEX PHARMACEUTICAL INC.-AE-2012-010056

PATIENT
  Age: 56 Year
  Sex: Male
  Weight: 95.46 kg

DRUGS (6)
  1. INCIVEK [Suspect]
     Indication: HEPATITIS C
     Route: 048
     Dates: start: 20120524
  2. RIBAVIRIN [Concomitant]
     Indication: HEPATITIS C
     Route: 048
     Dates: start: 20120524, end: 20120612
  3. RIBAVIRIN [Concomitant]
     Route: 048
     Dates: start: 20120612
  4. PEGASYS [Concomitant]
     Indication: HEPATITIS C
     Route: 058
     Dates: start: 20120524, end: 20120612
  5. PEGASYS [Concomitant]
     Route: 058
     Dates: start: 20120612
  6. NEUPOGEN [Concomitant]
     Route: 058

REACTIONS (1)
  - Drug dose omission [Recovered/Resolved]
